FAERS Safety Report 4999960-X (Version None)
Quarter: 2006Q2

REPORT INFORMATION
  Report Type: 
  Country: None (occurrence: None)
  Receive Date: 20060501
  Receipt Date: 20060418
  Transmission Date: 20061013
  Serious: Yes (Hospitalization)
  Sender: FDA-Public Use
  Company Number: 2006036465

PATIENT
  Sex: Male

DRUGS (1)
  1. GLADEM (SERTRALINE) [Suspect]
     Indication: ILL-DEFINED DISORDER

REACTIONS (2)
  - ATRIOVENTRICULAR BLOCK SECOND DEGREE [None]
  - SINUS ARRHYTHMIA [None]
